FAERS Safety Report 7439845-2 (Version None)
Quarter: 2011Q2

REPORT INFORMATION
  Report Type: 
  Country: None (occurrence: None)
  Receive Date: 20110427
  Receipt Date: 20100721
  Transmission Date: 20111010
  Serious: No
  Sender: FDA-Public Use
  Company Number: US-MYLANLABS-2010S1013318

PATIENT
  Age: 69 Year
  Sex: Female
  Weight: 65.77 kg

DRUGS (3)
  1. ASPIRIN [Concomitant]
  2. DILTIAZEM HCL [Suspect]
     Indication: BLOOD PRESSURE INCREASED
     Route: 048
     Dates: start: 20100215, end: 20100721
  3. CRESTOR [Concomitant]

REACTIONS (6)
  - TREMOR [None]
  - DRUG INEFFECTIVE [None]
  - BLOOD PRESSURE INCREASED [None]
  - HEART RATE INCREASED [None]
  - DIZZINESS [None]
  - FALL [None]
